FAERS Safety Report 12842680 (Version 1)
Quarter: 2016Q4

REPORT INFORMATION
  Report Type: Report from Study
  Country: AR (occurrence: AR)
  Receive Date: 20161013
  Receipt Date: 20161013
  Transmission Date: 20170207
  Serious: Yes (Death, Hospitalization)
  Sender: FDA-Public Use
  Company Number: PHHY2016AR140644

PATIENT
  Age: 73 Year
  Sex: Female

DRUGS (1)
  1. AFINITOR [Suspect]
     Active Substance: EVEROLIMUS
     Indication: RENAL CANCER
     Dosage: 10 MG, QD
     Route: 065
     Dates: start: 201608

REACTIONS (3)
  - Blood potassium decreased [Unknown]
  - Organ failure [Unknown]
  - Death [Fatal]

NARRATIVE: CASE EVENT DATE: 20160927
